FAERS Safety Report 8425423 (Version 5)
Quarter: 2012Q4

REPORT INFORMATION
  Report Type: 
  Country: US (occurrence: US)
  Receive Date: 20120224
  Receipt Date: 20121022
  Transmission Date: 20130627
  Serious: Yes (Hospitalization, Disabling, Other)
  Sender: FDA-Public Use
  Company Number: US-009507513-1202USA03508

PATIENT

DRUGS (4)
  1. FOSAMAX [Suspect]
     Indication: OSTEOPOROSIS
     Dosage: 70 mg, UNK
     Route: 048
     Dates: start: 200006, end: 200712
  2. FOSAMAX [Suspect]
     Indication: OSTEOPENIA
     Dosage: 5 mg, UNK
     Route: 048
     Dates: start: 20000630, end: 20000731
  3. FOSAMAX D [Suspect]
     Indication: OSTEOPOROSIS
     Dosage: 70 mg, UNK
     Route: 048
     Dates: start: 200801, end: 200811
  4. FOSAMAX D [Suspect]
     Indication: OSTEOPENIA

REACTIONS (25)
  - Femur fracture [Not Recovered/Not Resolved]
  - Low turnover osteopathy [Not Recovered/Not Resolved]
  - Calculus ureteric [Unknown]
  - Spinal osteoarthritis [Unknown]
  - Cystocele [Unknown]
  - Rectocele [Unknown]
  - Arthritis [Unknown]
  - Cervical dysplasia [Unknown]
  - Uterine disorder [Unknown]
  - Nasal disorder [Unknown]
  - Vaginal disorder [Unknown]
  - Tooth disorder [Unknown]
  - Osteopenia [Unknown]
  - Dyslipidaemia [Unknown]
  - Vitamin D deficiency [Unknown]
  - Angle closure glaucoma [Unknown]
  - Angle closure glaucoma [Unknown]
  - Eye laser surgery [Unknown]
  - Cataract [Unknown]
  - Corneal oedema [Unknown]
  - Cataract [Unknown]
  - Corneal dystrophy [Unknown]
  - Cataract operation [Unknown]
  - Keratoplasty [Unknown]
  - Pain in extremity [Unknown]
